FAERS Safety Report 10986195 (Version 2)
Quarter: 2015Q2

REPORT INFORMATION
  Report Type: Spontaneous
  Country: US (occurrence: US)
  Receive Date: 20150404
  Receipt Date: 20150525
  Transmission Date: 20150821
  Serious: No
  Sender: FDA-Public Use
  Company Number: US-JNJFOC-20130817243

PATIENT
  Sex: Male
  Weight: 83.92 kg

DRUGS (7)
  1. OMEPRAZOLE. [Concomitant]
     Active Substance: OMEPRAZOLE
     Indication: GASTROOESOPHAGEAL REFLUX DISEASE
     Route: 065
  2. CENTRUM SILVER [Concomitant]
     Active Substance: VITAMINS
     Route: 065
  3. IMODIUM A-D [Suspect]
     Active Substance: LOPERAMIDE HYDROCHLORIDE
     Indication: DIARRHOEA
     Dosage: 30 ML ONCE AND THEN 15 ML AFTER EACH LOOSE STOOL
     Route: 048
     Dates: start: 20130820, end: 20130824
  4. OCUVITE NOS [Concomitant]
     Route: 065
  5. DAYPRO [Concomitant]
     Active Substance: OXAPROZIN
     Indication: ARTHRITIS
     Route: 065
  6. IMODIUM A-D [Suspect]
     Active Substance: LOPERAMIDE HYDROCHLORIDE
     Route: 048
  7. CETIRIZINE HYDROCHLORIDE. [Concomitant]
     Active Substance: CETIRIZINE HYDROCHLORIDE
     Indication: HYPERSENSITIVITY
     Route: 065

REACTIONS (1)
  - Drug ineffective [Unknown]
